FAERS Safety Report 9616115 (Version 2)
Quarter: 2013Q4

REPORT INFORMATION
  Report Type: Spontaneous
  Country: US (occurrence: US)
  Receive Date: 20131011
  Receipt Date: 20131023
  Transmission Date: 20140711
  Serious: Yes (Hospitalization)
  Sender: FDA-Public Use
  Company Number: US-SA-2013SA100478

PATIENT
  Age: 51 Year
  Sex: Female

DRUGS (2)
  1. LUMIZYME [Suspect]
     Indication: GLYCOGEN STORAGE DISEASE TYPE II
     Route: 042
     Dates: start: 200704
  2. LUMIZYME [Suspect]
     Indication: GLYCOGEN STORAGE DISEASE TYPE II
     Route: 042
     Dates: start: 20100910, end: 20131002

REACTIONS (3)
  - Kidney infection [Not Recovered/Not Resolved]
  - Sepsis [Unknown]
  - Nephrolithiasis [Unknown]
